FAERS Safety Report 5015011-5 (Version None)
Quarter: 2006Q2

REPORT INFORMATION
  Report Type: 
  Country: None (occurrence: None)
  Receive Date: 20060425
  Receipt Date: 20050819
  Transmission Date: 20061013
  Serious: Yes (Life-Threatening)
  Sender: FDA-Public Use
  Company Number: WAES 0508USA03386

PATIENT
  Age: 6 Year
  Sex: Male
  Weight: 19.0511 kg

DRUGS (3)
  1. SINGULAIR [Suspect]
     Indication: BRONCHOSPASM
     Dosage: 4 MG/DAILY/PO
     Route: 048
     Dates: start: 20050626, end: 20050803
  2. CLARITIN [Concomitant]
  3. KEFLEX [Concomitant]

REACTIONS (2)
  - COAGULATION TEST ABNORMAL [None]
  - CONTUSION [None]
